FAERS Safety Report 6064891-3 (Version None)
Quarter: 2009Q1

REPORT INFORMATION
  Report Type: 
  Country: None (occurrence: None)
  Receive Date: 20090204
  Receipt Date: 20090123
  Transmission Date: 20090719
  Serious: Yes (Hospitalization)
  Sender: FDA-Public Use
  Company Number: FR-AVENTIS-200814359FR

PATIENT
  Age: 48 Year
  Sex: Female

DRUGS (3)
  1. FLAGYL [Suspect]
     Dates: start: 20081109, end: 20081119
  2. CYMEVAN                            /00784201/ [Concomitant]
     Dates: start: 20081106, end: 20081107
  3. CYMEVAN                            /00784201/ [Concomitant]
     Dates: start: 20081110, end: 20081114

REACTIONS (1)
  - LEUKOPENIA [None]
